FAERS Safety Report 19896287 (Version 1)
Quarter: 2021Q3

REPORT INFORMATION
  Report Type: Spontaneous
  Country: TW (occurrence: TW)
  Receive Date: 20210929
  Receipt Date: 20210929
  Transmission Date: 20211014
  Serious: Yes (Hospitalization)
  Sender: FDA-Public Use
  Company Number: TW-MYLANLABS-2021M1067778

PATIENT
  Age: 52 Year
  Sex: Female

DRUGS (4)
  1. PERTUZUMAB. [Concomitant]
     Active Substance: PERTUZUMAB
     Indication: HER2 POSITIVE BREAST CANCER
     Dosage: 420 MILLIGRAM, TRIWEEKLY FOR 4 CYCLES FROM DECEMBER 2016 TO APRIL 2017
     Route: 065
     Dates: start: 201612
  2. DOCETAXEL. [Concomitant]
     Active Substance: DOCETAXEL
     Indication: HER2 POSITIVE BREAST CANCER
     Dosage: 75 MILLIGRAM/SQ. METER, 6 CYCLES FROM DECEMBER 2016 TO APRIL 2017
     Route: 065
     Dates: start: 201612
  3. CARBOPLATIN. [Concomitant]
     Active Substance: CARBOPLATIN
     Indication: HER2 POSITIVE BREAST CANCER
     Dosage: 6 AUC TRI?WEEKLY FOR 6 CYCLES FROM DECEMBER 2016 TO APRIL 2017
     Route: 065
     Dates: start: 201612
  4. TRASTUZUMAB. [Suspect]
     Active Substance: TRASTUZUMAB
     Indication: HER2 POSITIVE BREAST CANCER
     Dosage: 6 MILLIGRAM/KILOGRAM, 6 CYCLES FROM DECEMBER 2016 TO APRIL 2017
     Route: 065
     Dates: start: 201612

REACTIONS (2)
  - Haemorrhagic infarction [Unknown]
  - Pulmonary embolism [Unknown]
